FAERS Safety Report 10930733 (Version 2)
Quarter: 2016Q3

REPORT INFORMATION
  Report Type: Spontaneous
  Country: IE (occurrence: IE)
  Receive Date: 20150319
  Receipt Date: 20160818
  Transmission Date: 20161109
  Serious: Yes (Hospitalization, Other)
  Sender: FDA-Public Use
  Company Number: IE-PFIZER INC-2015095078

PATIENT
  Age: 59 Year
  Sex: Female

DRUGS (1)
  1. SUTENT [Suspect]
     Active Substance: SUNITINIB MALATE
     Indication: METASTATIC RENAL CELL CARCINOMA
     Dosage: 50 MG, CYCLIC, 4/2 SCHEDULE FOR 3 WEEKS
     Dates: start: 20150217, end: 20150302

REACTIONS (5)
  - Malaise [Unknown]
  - Pericardial effusion [Unknown]
  - Blood potassium decreased [Unknown]
  - Liver function test increased [Recovering/Resolving]
  - Platelet count decreased [Unknown]
